FAERS Safety Report 7213564-X (Version None)
Quarter: 2010Q4

REPORT INFORMATION
  Report Type: 
  Country: None (occurrence: None)
  Receive Date: 20101229
  Receipt Date: 20101217
  Transmission Date: 20110411
  Serious: Yes (Other)
  Sender: FDA-Public Use
  Company Number: JPI-P-013295

PATIENT
  Age: 30 Year
  Sex: Female
  Weight: 52.6173 kg

DRUGS (7)
  1. XYREM [Suspect]
     Indication: CATAPLEXY
     Dosage: 2 IN 1 D, ORAL; 9 GM (4.5 MG, 2 IN 1 D),ORAL
     Route: 048
     Dates: start: 20050401
  2. CLONAZEPAM [Suspect]
     Indication: ANXIETY
     Dates: end: 20101206
  3. CLONAZEPAM [Suspect]
     Indication: ANXIETY
     Dates: start: 20101216
  4. SERTRALINE HYDROCHLORIDE [Concomitant]
  5. BUTALBITAL COMPOUND WITH CODEINE [Concomitant]
  6. ACETYLSALICYLIC ACID [Concomitant]
  7. PROMETHAZINE [Concomitant]

REACTIONS (2)
  - AMNESIA [None]
  - MENTAL DISORDER [None]
